FAERS Safety Report 25620612 (Version 2)
Quarter: 2025Q3

REPORT INFORMATION
  Report Type: Spontaneous
  Country: US (occurrence: US)
  Receive Date: 20250730
  Receipt Date: 20250924
  Transmission Date: 20251020
  Serious: No
  Sender: UROGEN PHARMA
  Company Number: US-UROGEN PHARMA LTD.-2025-UGN-000105

PATIENT

DRUGS (2)
  1. JELMYTO [Suspect]
     Active Substance: MITOMYCIN
     Indication: Transitional cell cancer of the renal pelvis and ureter
     Dates: start: 20250626, end: 20250626
  2. JELMYTO [Suspect]
     Active Substance: MITOMYCIN
     Indication: Bladder cancer

REACTIONS (2)
  - Chemical cystitis [Not Recovered/Not Resolved]
  - Device dislocation [Recovered/Resolved]

NARRATIVE: CASE EVENT DATE: 20250626
